FAERS Safety Report 22538304 (Version 1)
Quarter: 2023Q2

REPORT INFORMATION
  Report Type: Spontaneous
  Country: IN (occurrence: IN)
  Receive Date: 20230609
  Receipt Date: 20230609
  Transmission Date: 20230722
  Serious: Yes (Other)
  Sender: FDA-Public Use
  Company Number: IN-Accord-361054

PATIENT
  Age: 50 Year
  Sex: Female

DRUGS (1)
  1. TOPOTECAN [Suspect]
     Active Substance: TOPOTECAN HYDROCHLORIDE
     Indication: Rectal neoplasm
     Dosage: RECEIVED THREE CYCLES OF IN 3 MONTHS
     Dates: start: 202109, end: 202112

REACTIONS (3)
  - Haematotoxicity [Recovered/Resolved]
  - Hyponatraemia [Unknown]
  - Hyperkalaemia [Unknown]

NARRATIVE: CASE EVENT DATE: 20210101
